FAERS Safety Report 13892016 (Version 1)
Quarter: 2017Q3

REPORT INFORMATION
  Report Type: Spontaneous
  Country: US (occurrence: US)
  Receive Date: 20170822
  Receipt Date: 20170822
  Transmission Date: 20171127
  Serious: No
  Sender: FDA-Public Use
  Company Number: US-JNJFOC-20170619919

PATIENT
  Sex: Female
  Weight: 62.14 kg

DRUGS (10)
  1. MONTELUKAST SODIUM. [Concomitant]
     Active Substance: MONTELUKAST SODIUM
  2. ATIVAN [Concomitant]
     Active Substance: LORAZEPAM
  3. NINLARO [Concomitant]
     Active Substance: IXAZOMIB
  4. OPDIVO [Concomitant]
     Active Substance: NIVOLUMAB
  5. DARZALEX [Suspect]
     Active Substance: DARATUMUMAB
     Indication: PLASMA CELL MYELOMA
     Route: 042
     Dates: start: 20170714
  6. DEXAMETHASONE. [Concomitant]
     Active Substance: DEXAMETHASONE
  7. VIRACEPT [Concomitant]
     Active Substance: NELFINAVIR MESYLATE
  8. ACYCLOVIR. [Concomitant]
     Active Substance: ACYCLOVIR
  9. PRADAXA [Concomitant]
     Active Substance: DABIGATRAN ETEXILATE MESYLATE
  10. REVLIMID [Concomitant]
     Active Substance: LENALIDOMIDE

REACTIONS (1)
  - Weight increased [Unknown]
